FAERS Safety Report 15419864 (Version 1)
Quarter: 2018Q3

REPORT INFORMATION
  Report Type: Spontaneous
  Country: US (occurrence: US)
  Receive Date: 20180924
  Receipt Date: 20180924
  Transmission Date: 20181010
  Serious: Yes (Hospitalization)
  Sender: FDA-Public Use
  Company Number: US-JNJFOC-20180927273

PATIENT
  Sex: Female

DRUGS (9)
  1. SYMBICORT [Concomitant]
     Active Substance: BUDESONIDE\FORMOTEROL FUMARATE DIHYDRATE
     Dosage: 160MCG ?4.5 MCG/INH INHLATION AEROSOL, 2 PUFFS BID
     Route: 065
  2. ADEMPAS [Suspect]
     Active Substance: RIOCIGUAT
     Indication: PULMONARY ARTERIAL HYPERTENSION
     Route: 048
  3. LATANOPROST. [Concomitant]
     Active Substance: LATANOPROST
     Dosage: ONE DROP IN EACH EYE AT NIGHT
     Route: 065
  4. ADEMPAS [Suspect]
     Active Substance: RIOCIGUAT
     Indication: PULMONARY ARTERIAL HYPERTENSION
     Route: 048
     Dates: start: 20151022
  5. AZOPT [Concomitant]
     Active Substance: BRINZOLAMIDE
     Dosage: 1 DROP IN EACH EYE
     Route: 065
  6. VENTOLIN [Concomitant]
     Active Substance: ALBUTEROL SULFATE
     Dosage: 90MCG/INH INHALATION AEROSOL, 2 PUFFS EVERY 4 HOUS AS NEEDED
     Route: 065
  7. DEXILANT [Concomitant]
     Active Substance: DEXLANSOPRAZOLE
     Route: 048
  8. MONTELUKAST [Concomitant]
     Active Substance: MONTELUKAST SODIUM
     Route: 048
  9. XARELTO [Suspect]
     Active Substance: RIVAROXABAN
     Indication: PRODUCT USED FOR UNKNOWN INDICATION
     Route: 048

REACTIONS (5)
  - Gastrointestinal haemorrhage [Unknown]
  - Oesophagitis [Unknown]
  - Pneumonia [Recovering/Resolving]
  - Asthma [Unknown]
  - Gastritis [Unknown]
